FAERS Safety Report 26172116 (Version 1)
Quarter: 2025Q4

REPORT INFORMATION
  Report Type: Spontaneous
  Country: CN (occurrence: CN)
  Receive Date: 20251218
  Receipt Date: 20251218
  Transmission Date: 20260118
  Serious: Yes (Death, Hospitalization, Other)
  Sender: BAXTER
  Company Number: CN-MLMSERVICE-20251201-PI733644-00271-1

PATIENT
  Age: 41 Year
  Sex: Female

DRUGS (6)
  1. CYCLOPHOSPHAMIDE [Suspect]
     Active Substance: CYCLOPHOSPHAMIDE
     Indication: Diffuse large B-cell lymphoma
     Dosage: FIRST COURSE OF R- CHOP MARCH 1ST
     Route: 065
     Dates: start: 20230208
  2. CYCLOPHOSPHAMIDE [Suspect]
     Active Substance: CYCLOPHOSPHAMIDE
     Dosage: SECOND COURSE OF R- CHOP
     Route: 065
     Dates: start: 20230301
  3. RITUXIMAB [Suspect]
     Active Substance: RITUXIMAB
     Indication: Diffuse large B-cell lymphoma
     Dosage: UNK
     Route: 065
  4. DOXORUBICIN [Suspect]
     Active Substance: DOXORUBICIN
     Indication: Diffuse large B-cell lymphoma
     Dosage: UNK
     Route: 065
  5. VINCRISTINE [Suspect]
     Active Substance: VINCRISTINE
     Indication: Diffuse large B-cell lymphoma
     Dosage: UNK
     Route: 065
  6. PREDNISONE [Suspect]
     Active Substance: PREDNISONE
     Indication: Diffuse large B-cell lymphoma
     Dosage: UNK
     Route: 065

REACTIONS (11)
  - Haemolysis [Fatal]
  - Blood lactate dehydrogenase increased [Unknown]
  - Platelet count decreased [Unknown]
  - Haemorrhoidal haemorrhage [Unknown]
  - Petechiae [Unknown]
  - Deep vein thrombosis [Fatal]
  - Venous thrombosis [Fatal]
  - Respiratory failure [Fatal]
  - Pulmonary venous thrombosis [Fatal]
  - Pneumonia [Fatal]
  - Myelosuppression [Unknown]
